FAERS Safety Report 8349507-5 (Version None)
Quarter: 2012Q2

REPORT INFORMATION
  Report Type: 
  Country: None (occurrence: None)
  Receive Date: 20120508
  Receipt Date: 20120508
  Transmission Date: 20120825
  Serious: Yes (Life-Threatening, Hospitalization)
  Sender: FDA-Public Use
  Company Number: None

PATIENT
  Age: 64 Year
  Sex: Male
  Weight: 56.6996 kg

DRUGS (2)
  1. EPTIFIBATIDE [Suspect]
     Indication: CARDIOVASCULAR DISORDER
     Dosage: MG
     Dates: start: 20111122, end: 20111123
  2. EPTIFIBATIDE [Suspect]
     Indication: SURGERY
     Dosage: MG
     Dates: start: 20111122, end: 20111123

REACTIONS (1)
  - THROMBOCYTOPENIA [None]
